FAERS Safety Report 9398152 (Version 1)
Quarter: 2013Q3

REPORT INFORMATION
  Report Type: Spontaneous
  Country: US (occurrence: US)
  Receive Date: 20130712
  Receipt Date: 20130712
  Transmission Date: 20140515
  Serious: No
  Sender: FDA-Public Use
  Company Number: US-GLAXOSMITHKLINE-A0987573A

PATIENT
  Age: 58 Year
  Sex: Female

DRUGS (5)
  1. FLOVENT [Suspect]
     Indication: ASTHMA
     Dosage: 2PUFF TWICE PER DAY
     Route: 055
     Dates: start: 2003, end: 20120821
  2. VITAMIN C [Concomitant]
  3. VITAMIN D [Concomitant]
  4. BLOOD PRESSURE MEDICATION [Concomitant]
  5. MAGNESIUM [Concomitant]

REACTIONS (5)
  - Dysphonia [Recovering/Resolving]
  - Aphonia [Unknown]
  - Vocal cord thickening [Unknown]
  - Vocal cord disorder [Unknown]
  - Product quality issue [Unknown]
